FAERS Safety Report 7690417-4 (Version None)
Quarter: 2011Q3

REPORT INFORMATION
  Report Type: 
  Country: None (occurrence: None)
  Receive Date: 20110817
  Receipt Date: 20110817
  Transmission Date: 20111222
  Serious: Yes (Hospitalization)
  Sender: FDA-Public Use
  Company Number: None

PATIENT
  Sex: Male
  Weight: 92.8 kg

DRUGS (6)
  1. VELCADE [Suspect]
     Indication: DIFFUSE LARGE B-CELL LYMPHOMA
     Dosage: 1.6 MG M/M^2, WEEKLY, IV
     Route: 042
     Dates: start: 20110607, end: 20110726
  2. ALLOPURINOL [Concomitant]
  3. BACTRIM [Concomitant]
  4. MORPHINE [Concomitant]
  5. TEMSIROLIMUS [Suspect]
     Indication: DIFFUSE LARGE B-CELL LYMPHOMA
     Dosage: 25 MG, WEEKLY, IV
     Route: 042
     Dates: start: 20110607, end: 20110726
  6. ACYCLOVIR [Concomitant]

REACTIONS (5)
  - LYMPHOMA [None]
  - NEOPLASM PROGRESSION [None]
  - METASTASES TO BONE [None]
  - MENTAL STATUS CHANGES [None]
  - BONE LESION [None]
